FAERS Safety Report 23553083 (Version 1)
Quarter: 2024Q1

REPORT INFORMATION
  Report Type: Spontaneous
  Country: US (occurrence: None)
  Receive Date: 20240221
  Receipt Date: 20240221
  Transmission Date: 20240410
  Serious: No
  Sender: FDA-Public Use
  Company Number: None

PATIENT
  Sex: 0

DRUGS (1)
  1. COTEMPLA XR-ODT [Suspect]
     Active Substance: METHYLPHENIDATE

REACTIONS (1)
  - Drug ineffective [None]
